FAERS Safety Report 21937485 (Version 1)
Quarter: 2023Q1

REPORT INFORMATION
  Report Type: Spontaneous
  Country: GB (occurrence: GB)
  Receive Date: 20230201
  Receipt Date: 20230201
  Transmission Date: 20230418
  Serious: Yes (Other)
  Sender: FDA-Public Use
  Company Number: GB-MHRA-MED-202301311719134180-DBHPR

PATIENT
  Age: 43 Year
  Sex: Female
  Weight: 127 kg

DRUGS (1)
  1. JARDIANCE [Suspect]
     Active Substance: EMPAGLIFLOZIN
     Indication: Diabetes mellitus
     Dates: start: 20230110, end: 20230128

REACTIONS (1)
  - Ketosis [Recovering/Resolving]

NARRATIVE: CASE EVENT DATE: 20230128
